FAERS Safety Report 7310202-2 (Version None)
Quarter: 2011Q1

REPORT INFORMATION
  Report Type: 
  Country: None (occurrence: None)
  Receive Date: 20110224
  Receipt Date: 20110218
  Transmission Date: 20110831
  Serious: No
  Sender: FDA-Public Use
  Company Number: US-PFIZER INC-2011036595

PATIENT
  Sex: Female
  Weight: 58 kg

DRUGS (2)
  1. ATIVAN [Concomitant]
     Indication: INSOMNIA
     Dosage: 0.5 MG, AS NEEDED
     Route: 048
  2. NEURONTIN [Suspect]
     Indication: INSOMNIA
     Dosage: UNK
     Dates: start: 20101115, end: 20110201

REACTIONS (2)
  - VISION BLURRED [None]
  - DRUG INEFFECTIVE [None]
